FAERS Safety Report 20076530 (Version 1)
Quarter: 2021Q4

REPORT INFORMATION
  Report Type: Spontaneous
  Country: US (occurrence: US)
  Receive Date: 20211116
  Receipt Date: 20211116
  Transmission Date: 20220304
  Serious: Yes (Other)
  Sender: FDA-Public Use
  Company Number: US-TAKEDA-2021TUS069868

PATIENT
  Sex: Female
  Weight: 64 kg

DRUGS (1)
  1. VELCADE [Suspect]
     Active Substance: BORTEZOMIB
     Indication: Plasma cell myeloma
     Dosage: 1.75 MILLIGRAM
     Route: 058
     Dates: start: 20210830

REACTIONS (1)
  - Neuropathy peripheral [Unknown]
